FAERS Safety Report 6971840-X (Version None)
Quarter: 2010Q3

REPORT INFORMATION
  Report Type: 
  Country: None (occurrence: None)
  Receive Date: 20100903
  Receipt Date: 20100823
  Transmission Date: 20110219
  Serious: Yes (Other)
  Sender: FDA-Public Use
  Company Number: 010845

PATIENT
  Sex: 0

DRUGS (1)
  1. CILOSTAZOL [Suspect]
     Dosage: ORAL
     Route: 048

REACTIONS (1)
  - COLITIS ISCHAEMIC [None]
